FAERS Safety Report 4948715-0 (Version None)
Quarter: 2006Q1

REPORT INFORMATION
  Report Type: 
  Country: None (occurrence: None)
  Receive Date: 20060314
  Receipt Date: 20060302
  Transmission Date: 20060701
  Serious: Yes (Hospitalization, Other)
  Sender: FDA-Public Use
  Company Number: GBWYE443302MAR06

PATIENT
  Age: 66 Year
  Sex: Male

DRUGS (7)
  1. EFFEXOR [Suspect]
     Indication: DEPRESSION
     Dosage: 37.5 MG 2X PEWR 1 DAY ORAL
     Route: 048
     Dates: start: 20051110
  2. METFORMIN HCL [Concomitant]
  3. GLICLAZIDE (GLICLAZIDE) [Concomitant]
  4. ABILIFY (ARIPRAZOLE) [Concomitant]
  5. LANSOPRAZOLE [Concomitant]
  6. ASPIRIN [Concomitant]
  7. BENDROFLUAZIDE (BENDROFLUMETHIAZIDE) [Concomitant]

REACTIONS (8)
  - AGITATION [None]
  - CONFUSIONAL STATE [None]
  - COORDINATION ABNORMAL [None]
  - DIFFICULTY IN WALKING [None]
  - DYSARTHRIA [None]
  - FALL [None]
  - PARAESTHESIA [None]
  - VISUAL DISTURBANCE [None]
